FAERS Safety Report 5394452-0 (Version None)
Quarter: 2007Q3

REPORT INFORMATION
  Report Type: 
  Country: None (occurrence: None)
  Receive Date: 20070723
  Receipt Date: 20070606
  Transmission Date: 20080115
  Serious: No
  Sender: FDA-Public Use
  Company Number: US-AMGEN-US227874

PATIENT
  Sex: Male

DRUGS (6)
  1. VECTIBIX [Suspect]
     Indication: COLORECTAL CANCER
     Route: 042
     Dates: start: 20070424
  2. INSULIN [Concomitant]
     Route: 065
  3. UNSPECIFIED MEDICATION [Concomitant]
  4. METHADONE HCL [Concomitant]
     Route: 065
  5. ATENOLOL [Concomitant]
     Route: 065
  6. ATACAND [Concomitant]
     Route: 065

REACTIONS (4)
  - DERMATITIS ACNEIFORM [None]
  - DRY SKIN [None]
  - PAIN OF SKIN [None]
  - SKIN FISSURES [None]
